FAERS Safety Report 23997233 (Version 1)
Quarter: 2024Q2

REPORT INFORMATION
  Report Type: Report from Study
  Country: US (occurrence: US)
  Receive Date: 20240621
  Receipt Date: 20240621
  Transmission Date: 20240716
  Serious: Yes (Hospitalization)
  Sender: FDA-Public Use
  Company Number: US-ROCHE-10000000481

PATIENT

DRUGS (1)
  1. XOLAIR [Suspect]
     Active Substance: OMALIZUMAB
     Indication: Product used for unknown indication
     Route: 065

REACTIONS (8)
  - Illness [Unknown]
  - COVID-19 [Unknown]
  - Depressed mood [Unknown]
  - Asthma [Unknown]
  - Raynaud^s phenomenon [Unknown]
  - Colitis ulcerative [Unknown]
  - Sjogren^s syndrome [Unknown]
  - Bipolar disorder [Unknown]
